FAERS Safety Report 4322929-5 (Version None)
Quarter: 2004Q1

REPORT INFORMATION
  Report Type: 
  Country: None (occurrence: None)
  Receive Date: 20040322
  Receipt Date: 20040212
  Transmission Date: 20041129
  Serious: Yes (Other)
  Sender: FDA-Public Use
  Company Number: PHEH2004US01909

PATIENT
  Age: 84 Year
  Sex: Male

DRUGS (10)
  1. ZOMETA [Suspect]
     Indication: PROSTATE CANCER METASTATIC
     Dosage: 4 MG, INTRAVENOUS
     Route: 042
     Dates: start: 20040210
  2. KEFLEX [Suspect]
     Dosage: PROSTATE CANCER METASTATIC
  3. LASIX [Concomitant]
  4. ZOCOR [Concomitant]
  5. GLIPIZIDE [Concomitant]
  6. ACTON [Concomitant]
  7. LISINOPRIL [Concomitant]
  8. ASPIRIN [Concomitant]
  9. MULTIVITAMINS (RETINOL, PANTHENOL) [Concomitant]
  10. DOXAZOSIN (DOXAZOSIN) [Concomitant]

REACTIONS (2)
  - PYREXIA [None]
  - RASH GENERALISED [None]
